FAERS Safety Report 5525059-X (Version None)
Quarter: 2007Q4

REPORT INFORMATION
  Report Type: 
  Country: None (occurrence: None)
  Receive Date: 20071126
  Receipt Date: 20071112
  Transmission Date: 20080405
  Serious: Yes (Disabling)
  Sender: FDA-Public Use
  Company Number: US-KINGPHARMUSA00001-K200701458

PATIENT

DRUGS (5)
  1. ALTACE [Suspect]
     Indication: HYPERTENSION
     Dosage: 2.5 MG, QD
     Route: 048
  2. ALTACE [Suspect]
     Dosage: 5 MG, QD
     Route: 048
     Dates: start: 20070501, end: 20070901
  3. ALTACE [Suspect]
     Dosage: 10 MG, QD
     Route: 048
  4. NEBIVOLOL [Concomitant]
     Indication: HYPERTENSION
     Dosage: 100 MG, UNK
     Route: 048
  5. LEVOTHYROXINE SODIUM [Concomitant]
     Dosage: 150 UG, UNK
     Route: 048

REACTIONS (3)
  - CHRONIC FATIGUE SYNDROME [None]
  - FATIGUE [None]
  - PHARYNGOLARYNGEAL PAIN [None]
